FAERS Safety Report 22532623 (Version 1)
Quarter: 2023Q2

REPORT INFORMATION
  Report Type: Spontaneous
  Country: FR (occurrence: FR)
  Receive Date: 20230607
  Receipt Date: 20230607
  Transmission Date: 20230721
  Serious: Yes (Other)
  Sender: FDA-Public Use
  Company Number: FR-JAZZ-2020-FR-003931

PATIENT

DRUGS (8)
  1. NILOTINIB [Suspect]
     Active Substance: NILOTINIB
     Indication: Acute lymphocytic leukaemia
     Dosage: CONSOLIDATION 1
     Route: 065
     Dates: start: 20190512
  2. NILOTINIB [Suspect]
     Active Substance: NILOTINIB
     Dosage: CONSOLIDATION 3
     Route: 065
     Dates: start: 20200302
  3. METHOTREXATE [Suspect]
     Active Substance: METHOTREXATE
     Indication: Acute lymphocytic leukaemia
     Dosage: CONSOLIDATION 1
     Route: 065
     Dates: start: 20190512
  4. METHOTREXATE [Suspect]
     Active Substance: METHOTREXATE
     Dosage: CONSOLIDATION 1
     Route: 065
     Dates: start: 20200302
  5. ASPARAGINASE [Suspect]
     Active Substance: ASPARAGINASE
     Indication: Acute lymphocytic leukaemia
     Dosage: CONSOLIDATION 1
     Route: 065
     Dates: start: 20190512
  6. ASPARAGINASE [Suspect]
     Active Substance: ASPARAGINASE
     Dosage: CONSOLIDATION 3
     Route: 065
     Dates: start: 20200302, end: 202003
  7. CYTARABINE [Concomitant]
     Active Substance: CYTARABINE
     Indication: Acute lymphocytic leukaemia
     Dosage: CONSOLIDATION 4
     Route: 065
     Dates: start: 2020
  8. CYTARABINE [Concomitant]
     Active Substance: CYTARABINE
     Dosage: CONSOLIDATION 2
     Route: 065
     Dates: start: 20200201

REACTIONS (1)
  - Drug hypersensitivity [Unknown]

NARRATIVE: CASE EVENT DATE: 20200301
